FAERS Safety Report 10302273 (Version 2)
Quarter: 2014Q3

REPORT INFORMATION
  Report Type: Spontaneous
  Country: FR (occurrence: FR)
  Receive Date: 20140714
  Receipt Date: 20140805
  Transmission Date: 20150326
  Serious: Yes (Hospitalization, Other)
  Sender: FDA-Public Use
  Company Number: FR-ASTRAZENECA-2014SE48850

PATIENT
  Age: 14662 Day
  Sex: Female

DRUGS (11)
  1. XYLOCAINE [Suspect]
     Active Substance: LIDOCAINE HYDROCHLORIDE
     Route: 065
     Dates: start: 20140513, end: 20140513
  2. AMOXICILLINE ACIDE CLAVULANIQUE SANDOZ [Suspect]
     Active Substance: AMOXICILLIN\CLAVULANATE POTASSIUM
     Indication: PROPHYLAXIS
     Dosage: 100 ML IN SLOW INTRAVENOUS AND THEN INTRAVENOUS
     Route: 042
     Dates: start: 20140513, end: 20140513
  3. PROFENID [Suspect]
     Active Substance: KETOPROFEN
     Route: 042
     Dates: start: 20140513, end: 20140513
  4. DEXAMETHASONE MERCK [Suspect]
     Active Substance: DEXAMETHASONE
     Route: 065
     Dates: start: 20140513, end: 20140513
  5. SUFENTANIL MYLAN [Suspect]
     Active Substance: SUFENTANIL
     Indication: GENERAL ANAESTHESIA
     Route: 042
     Dates: start: 20140513, end: 20140513
  6. DIPRIVAN [Suspect]
     Active Substance: PROPOFOL
     Indication: GENERAL ANAESTHESIA
     Route: 042
     Dates: start: 20140513, end: 20140513
  7. DROLEPTAN [Suspect]
     Active Substance: DROPERIDOL
     Route: 042
     Dates: start: 20140513, end: 20140513
  8. SEVORANE [Suspect]
     Active Substance: SEVOFLURANE
     Indication: GENERAL ANAESTHESIA
     Route: 065
     Dates: start: 20140513, end: 20140513
  9. TACRIUM [Suspect]
     Active Substance: ATRACURIUM
     Route: 065
     Dates: start: 20140513, end: 20140513
  10. EPHEDRINE [Suspect]
     Active Substance: EPHEDRINE
     Route: 065
     Dates: start: 20140513, end: 20140513
  11. KETAMINE [Suspect]
     Active Substance: KETAMINE
     Route: 042
     Dates: start: 20140513, end: 20140513

REACTIONS (7)
  - Haemodynamic instability [Unknown]
  - Anuria [Recovered/Resolved]
  - Cardiovascular insufficiency [None]
  - Renal failure acute [Recovered/Resolved]
  - Cardiac failure acute [Unknown]
  - Oliguria [Recovered/Resolved]
  - Hypovolaemia [None]

NARRATIVE: CASE EVENT DATE: 20140513
